FAERS Safety Report 16092564 (Version 1)
Quarter: 2019Q1

REPORT INFORMATION
  Report Type: Spontaneous
  Country: CZ (occurrence: CZ)
  Receive Date: 20190319
  Receipt Date: 20190319
  Transmission Date: 20190418
  Serious: Yes (Other)
  Sender: FDA-Public Use
  Company Number: PHHY2019CZ060726

PATIENT
  Sex: Male

DRUGS (2)
  1. PREDNISONE. [Suspect]
     Active Substance: PREDNISONE
     Indication: PROSTATE CANCER
     Dosage: 10 MG, QD
     Route: 065
     Dates: start: 20150825, end: 20160105
  2. DOCETAXEL. [Suspect]
     Active Substance: DOCETAXEL
     Indication: PROSTATE CANCER
     Dosage: 75 MG/M2, Q3W
     Route: 065
     Dates: start: 20150825, end: 20160105

REACTIONS (7)
  - Prostate cancer [Unknown]
  - Product use in unapproved indication [Unknown]
  - Paraparesis [Not Recovered/Not Resolved]
  - Prostatomegaly [Unknown]
  - Malignant neoplasm progression [Unknown]
  - Polyneuropathy [Unknown]
  - Gynaecomastia [Unknown]

NARRATIVE: CASE EVENT DATE: 201511
